FAERS Safety Report 6025120-X (Version None)
Quarter: 2008Q4

REPORT INFORMATION
  Report Type: 
  Country: None (occurrence: None)
  Receive Date: 20081231
  Receipt Date: 20081223
  Transmission Date: 20090506
  Serious: Yes (Other)
  Sender: FDA-Public Use
  Company Number: FR-PFIZER INC-2008158378

PATIENT

DRUGS (1)
  1. ATORVASTATIN CALCIUM [Suspect]
     Indication: HYPERCHOLESTEROLAEMIA
     Dates: start: 20060401, end: 20070801

REACTIONS (3)
  - MYALGIA [None]
  - TENDON RUPTURE [None]
  - TENDONITIS [None]
